FAERS Safety Report 17091795 (Version 3)
Quarter: 2020Q1

REPORT INFORMATION
  Report Type: Spontaneous
  Country: DE (occurrence: DE)
  Receive Date: 20191129
  Receipt Date: 20200107
  Transmission Date: 20200409
  Serious: Yes (Hospitalization, Other)
  Sender: FDA-Public Use
  Company Number: DE-SA-2019SA329925

PATIENT
  Age: 35 Year
  Sex: Female
  Weight: 112 kg

DRUGS (11)
  1. CANDECOR [Concomitant]
     Active Substance: CANDESARTAN CILEXETIL
     Indication: HYPERTENSION
     Dosage: 16 MG, QD
  2. L-THYROXINE [LEVOTHYROXINE] [Concomitant]
     Active Substance: LEVOTHYROXINE
     Indication: HYPOTHYROIDISM
     Dosage: 100 UG, QD
  3. MINISISTON [Concomitant]
     Active Substance: ETHINYL ESTRADIOL\LEVONORGESTREL
     Indication: CONTRACEPTION
     Dosage: FOR 20 YEARS
  4. VALSARTAN. [Concomitant]
     Active Substance: VALSARTAN
     Indication: HYPERTENSION
  5. METHOTREXATE. [Concomitant]
     Active Substance: METHOTREXATE
     Indication: PRURIGO
     Dosage: 10 MG, QW
  6. DUPIXENT [Suspect]
     Active Substance: DUPILUMAB
     Indication: DERMATITIS ATOPIC
     Dosage: 300 MG
     Dates: start: 20181109, end: 20191115
  7. TRICLOSAN. [Concomitant]
     Active Substance: TRICLOSAN
  8. CYCLOSPORINE. [Concomitant]
     Active Substance: CYCLOSPORINE
     Indication: PRURIGO
     Dosage: 200 MG, QD
  9. CLOBETASOL [Concomitant]
     Active Substance: CLOBETASOL
  10. VITAMIN D3 [Concomitant]
     Active Substance: CHOLECALCIFEROL
  11. NERISONA [Concomitant]
     Active Substance: DIFLUCORTOLONE VALERATE

REACTIONS (5)
  - Crohn^s disease [Recovering/Resolving]
  - Chronic gastritis [Recovering/Resolving]
  - Diarrhoea [Not Recovered/Not Resolved]
  - Colitis [Recovering/Resolving]
  - Abdominal pain [Recovered/Resolved]

NARRATIVE: CASE EVENT DATE: 201906
